FAERS Safety Report 8906625 (Version 3)
Quarter: 2013Q1

REPORT INFORMATION
  Report Type: Spontaneous
  Country: JP (occurrence: JP)
  Receive Date: 20121114
  Receipt Date: 20130329
  Transmission Date: 20140127
  Serious: Yes (Death)
  Sender: FDA-Public Use
  Company Number: JP-ELI_LILLY_AND_COMPANY-JP201211001806

PATIENT
  Age: 66 Year
  Sex: Male
  Weight: 54.4 kg

DRUGS (4)
  1. ALIMTA [Suspect]
     Indication: LUNG ADENOCARCINOMA STAGE IV
     Dosage: 888 MG, OTHER
     Route: 042
     Dates: start: 20120112, end: 20120830
  2. CARBOPLATIN [Concomitant]
     Indication: LUNG ADENOCARCINOMA STAGE IV
     Dosage: 584 MG, UNK
     Route: 042
     Dates: start: 20120112, end: 20120315
  3. PANVITAN [Concomitant]
     Dosage: 1 G, UNK
     Route: 048
     Dates: start: 20111215, end: 20121028
  4. METHYCOBAL [Concomitant]
     Dosage: 1000 UG, UNK
     Dates: start: 20120106, end: 20120830

REACTIONS (1)
  - Pulmonary alveolar haemorrhage [Fatal]
